FAERS Safety Report 11133118 (Version 1)
Quarter: 2015Q2

REPORT INFORMATION
  Report Type: Spontaneous
  Country: DE (occurrence: DE)
  Receive Date: 20150522
  Receipt Date: 20150522
  Transmission Date: 20150821
  Serious: Yes (Hospitalization, Other)
  Sender: FDA-Public Use
  Company Number: DE-BAUSCH-BL-2015-013656

PATIENT
  Age: 65 Year
  Sex: Male
  Weight: 80 kg

DRUGS (2)
  1. TIMOMANN EYE DROPS (TIMOMANN EYE DROPS) (MANN) [Suspect]
     Active Substance: TIMOLOL MALEATE
     Indication: GLAUCOMA
     Route: 047
  2. LATANOPROST. [Suspect]
     Active Substance: LATANOPROST
     Indication: GLAUCOMA
     Route: 065

REACTIONS (4)
  - Metabolic syndrome [Unknown]
  - Ocular hypertension [Unknown]
  - Cubital tunnel syndrome [Unknown]
  - Bradycardia [Unknown]

NARRATIVE: CASE EVENT DATE: 200811
